FAERS Safety Report 10034919 (Version 1)
Quarter: 2014Q1

REPORT INFORMATION
  Report Type: Spontaneous
  Country: US (occurrence: None)
  Receive Date: 20140306
  Receipt Date: 20140306
  Transmission Date: 20141002
  Serious: Yes (Other)
  Sender: FDA-Public Use
  Company Number: 163-21880-13103214

PATIENT
  Age: 71 Year
  Sex: Female
  Weight: 70.3 kg

DRUGS (2)
  1. REVLIMID (LENALIDOMIDE) (25 MILLIGRAM, CAPSULES) [Suspect]
     Indication: PLASMA CELL MYELOMA
     Dosage: 25 MG, 14 IN 21 D, PO 30SEP2013-UNKNOWN
     Route: 048
     Dates: start: 20130930
  2. DOXYCYCLINE (DOXYCYCLINE) [Concomitant]
     Indication: PLASMA CELL MYELOMA
     Dosage: 25 MG, 14 IN 21 D, PO  30/SEP/2013 - UNKNOWN

REACTIONS (4)
  - Rash erythematous [None]
  - Flushing [None]
  - Skin lesion [None]
  - Oedema peripheral [None]
